FAERS Safety Report 13381883 (Version 1)
Quarter: 2017Q1

REPORT INFORMATION
  Report Type: Report from Study
  Country: JP (occurrence: JP)
  Receive Date: 20170329
  Receipt Date: 20170329
  Transmission Date: 20170429
  Serious: Yes (Hospitalization)
  Sender: FDA-Public Use
  Company Number: PHHY2012JP142656

PATIENT
  Age: 67 Year
  Sex: Female
  Weight: 62 kg

DRUGS (13)
  1. XELODA [Suspect]
     Active Substance: CAPECITABINE
     Indication: PRODUCT USED FOR UNKNOWN INDICATION
     Dosage: 3600 MG,
     Route: 048
     Dates: start: 20111019, end: 20120119
  2. PL [Concomitant]
     Active Substance: ACETAMINOPHEN\CAFFEINE\PROMETHAZINE\SALICYLAMIDE
     Indication: JOINT ARTHROPLASTY
     Dosage: 1 G, TID
     Route: 048
     Dates: start: 20111014
  3. ALFAROL [Concomitant]
     Active Substance: ALFACALCIDOL
     Indication: JOINT ARTHROPLASTY
     Dosage: 1 UG, QD
     Route: 048
     Dates: start: 20111014
  4. URSO [Concomitant]
     Active Substance: URSODIOL
     Indication: JOINT ARTHROPLASTY
     Dosage: 100 MG, TID
     Route: 048
     Dates: start: 20111014
  5. PYDOXAL [Concomitant]
     Active Substance: PYRIDOXAL
     Indication: NEUROPATHY PERIPHERAL
     Route: 048
     Dates: start: 20111017, end: 20120203
  6. INFLUENZA VACCINE [Concomitant]
     Active Substance: INFLUENZA VIRUS VACCINE
     Indication: ANTIVIRAL PROPHYLAXIS
     Dosage: QD
     Route: 051
     Dates: start: 20111111, end: 20111111
  7. FAMOTIDINE D [Concomitant]
     Active Substance: FAMOTIDINE
     Indication: JOINT ARTHROPLASTY
     Dosage: 10 MG, BID
     Route: 048
     Dates: start: 20111014
  8. TOUCHRON [Concomitant]
     Indication: JOINT ARTHROPLASTY
     Dosage: 1 DF, BID
     Route: 062
     Dates: start: 20111014
  9. TYKERB [Suspect]
     Active Substance: LAPATINIB DITOSYLATE
     Indication: BREAST CANCER
     Dosage: 1250 MG,
     Route: 048
     Dates: start: 20111019, end: 20120119
  10. AMOBAN [Concomitant]
     Active Substance: ZOPICLONE
     Indication: INSOMNIA
     Dosage: 7.5 MG,
     Route: 048
     Dates: start: 20111014
  11. LOCOID [Concomitant]
     Active Substance: HYDROCORTISONE BUTYRATE
     Indication: JOINT ARTHROPLASTY
     Route: 065
     Dates: start: 20111014
  12. LIPITOR [Concomitant]
     Active Substance: ATORVASTATIN CALCIUM
     Indication: JOINT ARTHROPLASTY
     Dosage: 10 MG, QD
     Route: 048
     Dates: start: 20111014
  13. MUCOSOLVAN L [Concomitant]
     Active Substance: AMBROXOL HYDROCHLORIDE
     Indication: JOINT ARTHROPLASTY
     Dosage: 45 MG, QD
     Route: 048
     Dates: start: 20111014

REACTIONS (9)
  - Pharyngitis [Recovered/Resolved]
  - Diarrhoea [Recovered/Resolved]
  - Palmar-plantar erythrodysaesthesia syndrome [Recovered/Resolved]
  - Nasopharyngitis [Unknown]
  - Dizziness [Recovering/Resolving]
  - Hepatic function abnormal [Recovered/Resolved]
  - Rhinitis [Recovered/Resolved]
  - Cough [Recovered/Resolved]
  - Decreased appetite [Recovering/Resolving]

NARRATIVE: CASE EVENT DATE: 20111021
